FAERS Safety Report 4423544-5 (Version None)
Quarter: 2004Q3

REPORT INFORMATION
  Report Type: 
  Country: None (occurrence: None)
  Receive Date: 20040805
  Receipt Date: 20040723
  Transmission Date: 20050211
  Serious: Yes (Hospitalization)
  Sender: FDA-Public Use
  Company Number: GB-JNJFOC-20040706123

PATIENT
  Age: 58 Year
  Sex: Female

DRUGS (8)
  1. REMICADE [Suspect]
     Indication: RHEUMATOID ARTHRITIS
     Dosage: INTRAVENOUS
     Route: 042
     Dates: start: 20010711
  2. ERYTHROMYCIN [Concomitant]
  3. METHOTREXATE [Concomitant]
  4. WARFARIN (WARFARIN) [Concomitant]
  5. RANITIDINE [Concomitant]
  6. FOSAMAX [Concomitant]
  7. NIFEDIPINE [Concomitant]
  8. FOLIC ACID [Concomitant]

REACTIONS (2)
  - CALCINOSIS [None]
  - POSTOPERATIVE INFECTION [None]
